FAERS Safety Report 8138862-7 (Version None)
Quarter: 2012Q1

REPORT INFORMATION
  Report Type: 
  Country: None (occurrence: None)
  Receive Date: 20120215
  Receipt Date: 20120206
  Transmission Date: 20120608
  Serious: Yes (Other)
  Sender: FDA-Public Use
  Company Number: ES-ROCHE-1037126

PATIENT
  Age: 69 Year
  Sex: Female

DRUGS (1)
  1. MABTHERA [Suspect]
     Indication: RHEUMATOID ARTHRITIS
     Dosage: 1000 MG
     Route: 041
     Dates: start: 20110420, end: 20110420

REACTIONS (1)
  - LEUKOCYTOCLASTIC VASCULITIS [None]
